FAERS Safety Report 25852746 (Version 1)
Quarter: 2025Q3

REPORT INFORMATION
  Report Type: Spontaneous
  Country: US (occurrence: US)
  Receive Date: 20250926
  Receipt Date: 20250926
  Transmission Date: 20251020
  Serious: No
  Sender: APOTEX
  Company Number: US-APOTEX-2025AP012180

PATIENT
  Age: 44 Year
  Sex: Male

DRUGS (4)
  1. SELEGILINE [Suspect]
     Active Substance: SELEGILINE
     Indication: Depression
     Dosage: 70 MILLIGRAM, QD
     Route: 048
  2. SELEGILINE [Suspect]
     Active Substance: SELEGILINE
     Indication: Borderline personality disorder
  3. BREXPIPRAZOLE [Suspect]
     Active Substance: BREXPIPRAZOLE
     Indication: Depression
     Route: 065
  4. BREXPIPRAZOLE [Suspect]
     Active Substance: BREXPIPRAZOLE
     Indication: Borderline personality disorder

REACTIONS (1)
  - Drug ineffective [Unknown]
